FAERS Safety Report 12793900 (Version 1)
Quarter: 2016Q3

REPORT INFORMATION
  Report Type: Spontaneous
  Country: US (occurrence: US)
  Receive Date: 20160929
  Receipt Date: 20160929
  Transmission Date: 20161109
  Serious: No
  Sender: FDA-Public Use
  Company Number: US-JAZZ-2016-US-011951

PATIENT
  Sex: Female

DRUGS (35)
  1. XYREM [Suspect]
     Active Substance: SODIUM OXYBATE
     Dosage: DOSE ADJUSTMENTS
     Route: 048
     Dates: start: 200610, end: 200611
  2. ELMIRON [Concomitant]
     Active Substance: PENTOSAN POLYSULFATE SODIUM
  3. PROVENTIL HFA [Concomitant]
     Active Substance: ALBUTEROL SULFATE
  4. RELPAX [Concomitant]
     Active Substance: ELETRIPTAN HYDROBROMIDE
  5. VITAMIN D [Concomitant]
     Active Substance: CHOLECALCIFEROL
  6. NASCOBAL [Concomitant]
     Active Substance: CYANOCOBALAMIN
  7. LORAZEPAM. [Concomitant]
     Active Substance: LORAZEPAM
  8. CALTRATE [Concomitant]
     Active Substance: CALCIUM CARBONATE
  9. FLAXSEED [Concomitant]
     Active Substance: FLAX SEED
  10. PROVIGIL [Concomitant]
     Active Substance: MODAFINIL
  11. TRAMADOL HCL [Concomitant]
     Active Substance: TRAMADOL HYDROCHLORIDE
  12. ALLEGRA [Concomitant]
     Active Substance: FEXOFENADINE HYDROCHLORIDE
  13. SYNTHROID [Concomitant]
     Active Substance: LEVOTHYROXINE SODIUM
  14. XOLEGEL COREPAK [Concomitant]
  15. PROCTOZONE HC [Concomitant]
     Active Substance: HYDROCORTISONE
  16. XYREM [Suspect]
     Active Substance: SODIUM OXYBATE
     Indication: INSOMNIA
     Dosage: 2.25 G, BID
     Route: 048
     Dates: start: 200610, end: 200610
  17. PRENATAL DHA [Concomitant]
  18. ATIVAN [Concomitant]
     Active Substance: LORAZEPAM
  19. XYREM [Suspect]
     Active Substance: SODIUM OXYBATE
     Dosage: 4.5 G, BID
     Route: 048
     Dates: start: 200611
  20. ALPRAZOLAM. [Suspect]
     Active Substance: ALPRAZOLAM
     Indication: PRODUCT USED FOR UNKNOWN INDICATION
     Dosage: UNK
     Dates: start: 20160614, end: 20160616
  21. VITAMIN B12 [Concomitant]
     Active Substance: CYANOCOBALAMIN
  22. LAMICTAL [Concomitant]
     Active Substance: LAMOTRIGINE
  23. MEDROL [Concomitant]
     Active Substance: METHYLPREDNISOLONE
  24. PROTONIX [Concomitant]
     Active Substance: PANTOPRAZOLE SODIUM
  25. SOMINEX [Concomitant]
     Active Substance: DIPHENHYDRAMINE HYDROCHLORIDE
  26. TOPAMAX [Concomitant]
     Active Substance: TOPIRAMATE
  27. VALIUM [Suspect]
     Active Substance: DIAZEPAM
     Indication: PRODUCT USED FOR UNKNOWN INDICATION
  28. DEXEDRINE [Concomitant]
     Active Substance: DEXTROAMPHETAMINE SULFATE
  29. EPIPEN [Concomitant]
     Active Substance: EPINEPHRINE
  30. RECLAST [Concomitant]
     Active Substance: ZOLEDRONIC ACID
  31. HYDROXYZINE [Concomitant]
     Active Substance: HYDROXYZINE\HYDROXYZINE HYDROCHLORIDE
  32. XYZAL [Concomitant]
     Active Substance: LEVOCETIRIZINE DIHYDROCHLORIDE
  33. BENADRYL ALLERGY [Concomitant]
     Active Substance: DIPHENHYDRAMINE HYDROCHLORIDE
  34. DIAZEPAM. [Concomitant]
     Active Substance: DIAZEPAM
  35. EFFEXOR [Concomitant]
     Active Substance: VENLAFAXINE HYDROCHLORIDE

REACTIONS (2)
  - Headache [Unknown]
  - Drug ineffective [Unknown]
